FAERS Safety Report 4297138-9 (Version None)
Quarter: 2004Q1

REPORT INFORMATION
  Report Type: 
  Country: None (occurrence: None)
  Receive Date: 20040213
  Receipt Date: 20040203
  Transmission Date: 20041129
  Serious: Yes (Hospitalization)
  Sender: FDA-Public Use
  Company Number: GB-JNJFOC-20040200732

PATIENT
  Age: 45 Year
  Sex: Female

DRUGS (7)
  1. REMICADE [Suspect]
     Indication: RHEUMATOID ARTHRITIS
     Dosage: 200 MG, INTRAVENOUS
     Route: 042
     Dates: start: 20020816, end: 20021101
  2. METHOTREXATE [Concomitant]
  3. CYCLOSPORINE [Concomitant]
  4. HCQ (HYDROXYCHLOROQUINE) [Concomitant]
  5. FOLIC ACID [Concomitant]
  6. MORPHINE SULFATE [Concomitant]
  7. AMITRIPTYLINE HCL [Concomitant]

REACTIONS (1)
  - DISLOCATION OF JOINT PROSTHESIS [None]
